FAERS Safety Report 18663248 (Version 3)
Quarter: 2023Q1

REPORT INFORMATION
  Report Type: Spontaneous
  Country: US (occurrence: None)
  Receive Date: 20201224
  Receipt Date: 20230130
  Transmission Date: 20230418
  Serious: No
  Sender: FDA-Public Use
  Company Number: 2020SF61151

PATIENT
  Age: 26057 Day
  Sex: Female
  Weight: 81.6 kg

DRUGS (3)
  1. BRILINTA [Suspect]
     Active Substance: TICAGRELOR
     Indication: Thrombosis
     Route: 048
     Dates: start: 201912
  2. BRILINTA [Suspect]
     Active Substance: TICAGRELOR
     Indication: Acute coronary syndrome
     Route: 048
     Dates: start: 201912
  3. FLOVENT [Concomitant]
     Active Substance: FLUTICASONE PROPIONATE
     Indication: Asthma
     Dosage: 44.0MG AS REQUIRED
     Route: 055
     Dates: start: 201912

REACTIONS (10)
  - Malaise [Unknown]
  - Abdominal discomfort [Unknown]
  - Vomiting [Recovered/Resolved]
  - Cough [Not Recovered/Not Resolved]
  - Palpitations [Unknown]
  - Fear [Unknown]
  - Angina pectoris [Unknown]
  - Dyspnoea [Unknown]
  - Product use issue [Recovered/Resolved with Sequelae]
  - Product contamination microbial [Unknown]

NARRATIVE: CASE EVENT DATE: 20191210
